FAERS Safety Report 4817018-7 (Version None)
Quarter: 2005Q4

REPORT INFORMATION
  Report Type: 
  Country: None (occurrence: None)
  Receive Date: 20051101
  Receipt Date: 20050831
  Transmission Date: 20060501
  Serious: Yes (Hospitalization, Disabling)
  Sender: FDA-Public Use
  Company Number: GR-GLAXOSMITHKLINE-B0392367A

PATIENT
  Age: 75 Year
  Sex: Male
  Weight: 80 kg

DRUGS (6)
  1. ROSIGLITAZONE [Suspect]
     Route: 048
     Dates: start: 20020924, end: 20050831
  2. GLYBURIDE [Concomitant]
     Dosage: 20MG PER DAY
     Route: 048
     Dates: start: 20010801
  3. XENICAL [Concomitant]
     Dosage: 120MG PER DAY
     Route: 048
     Dates: start: 20000801
  4. NORVASC [Concomitant]
     Dosage: 5MG PER DAY
     Route: 048
     Dates: start: 20020201
  5. SALOSPIR [Concomitant]
     Dosage: 100MG PER DAY
     Route: 048
     Dates: start: 20010201
  6. LIPITOR [Concomitant]
     Dosage: 10MG PER DAY
     Route: 048
     Dates: start: 20010801

REACTIONS (1)
  - MYALGIA [None]
